FAERS Safety Report 23733832 (Version 1)
Quarter: 2024Q2

REPORT INFORMATION
  Report Type: Spontaneous
  Country: US (occurrence: US)
  Receive Date: 20240412
  Receipt Date: 20240412
  Transmission Date: 20240716
  Serious: No
  Sender: FDA-Public Use
  Company Number: US-GSK-US2024AMR041748

PATIENT
  Age: 42 Month
  Sex: Female

DRUGS (1)
  1. FLUTICASONE PROPIONATE [Suspect]
     Active Substance: FLUTICASONE PROPIONATE
     Indication: Chronic respiratory disease
     Dosage: UNK, HFA, 110 MCG, 12G/120 METERED

REACTIONS (2)
  - Device use issue [Unknown]
  - Product use in unapproved indication [Unknown]
